FAERS Safety Report 12236945 (Version 3)
Quarter: 2017Q1

REPORT INFORMATION
  Report Type: Spontaneous
  Country: FR (occurrence: FR)
  Receive Date: 20160405
  Receipt Date: 20170109
  Transmission Date: 20170428
  Serious: Yes (Hospitalization)
  Sender: FDA-Public Use
  Company Number: FR-BEH-2016060886

PATIENT
  Age: 68 Year
  Sex: Male

DRUGS (14)
  1. LASILIX [Concomitant]
     Active Substance: FUROSEMIDE
  2. NEBIVOLOL. [Concomitant]
     Active Substance: NEBIVOLOL
  3. CORTANCYL [Suspect]
     Active Substance: PREDNISONE
     Indication: RASH PRURITIC
     Dosage: 80 MG, QD
     Route: 048
     Dates: start: 20160220, end: 20160225
  4. VESICARE [Concomitant]
     Active Substance: SOLIFENACIN SUCCINATE
  5. PRIVIGEN [Suspect]
     Active Substance: HUMAN IMMUNOGLOBULIN G
     Indication: CHRONIC INFLAMMATORY DEMYELINATING POLYRADICULONEUROPATHY
     Dosage: 100  MG/ML, SOLUTION FOR INFUSION
     Route: 042
     Dates: start: 20160208, end: 20160212
  6. AMLODIPINE [Concomitant]
     Active Substance: AMLODIPINE BESYLATE
  7. ALLOPURINOL. [Concomitant]
     Active Substance: ALLOPURINOL
  8. KARDEGIC [Concomitant]
     Active Substance: ASPIRIN LYSINE
  9. KESTIN [Concomitant]
     Active Substance: EBASTINE
  10. CORTANCYL [Suspect]
     Active Substance: PREDNISONE
     Indication: FACE OEDEMA
  11. CORTANCYL [Suspect]
     Active Substance: PREDNISONE
     Indication: ECZEMA
  12. DOLIPRANE [Concomitant]
     Active Substance: ACETAMINOPHEN
  13. OMEPRAZOLE. [Concomitant]
     Active Substance: OMEPRAZOLE
  14. CORTANCYL [Suspect]
     Active Substance: PREDNISONE
     Indication: DRUG HYPERSENSITIVITY

REACTIONS (10)
  - Drug reaction with eosinophilia and systemic symptoms [Recovering/Resolving]
  - Lymphadenopathy [Recovering/Resolving]
  - Eczema [Recovering/Resolving]
  - Drug hypersensitivity [Recovering/Resolving]
  - Face oedema [Recovering/Resolving]
  - Eosinophilia [Recovering/Resolving]
  - Dermatitis exfoliative [Recovering/Resolving]
  - Chills [Recovering/Resolving]
  - Rash pruritic [Recovering/Resolving]
  - Rash generalised [Recovering/Resolving]

NARRATIVE: CASE EVENT DATE: 201602
